FAERS Safety Report 8219356-7 (Version None)
Quarter: 2012Q1

REPORT INFORMATION
  Report Type: 
  Country: None (occurrence: None)
  Receive Date: 20120307
  Receipt Date: 20100317
  Transmission Date: 20120608
  Serious: Yes (Hospitalization, Other)
  Sender: FDA-Public Use
  Company Number: PHEH2010US03166

PATIENT
  Sex: Female

DRUGS (1)
  1. AFINITOR [Suspect]
     Dosage: 10 MG, DAILY, ORAL
     Route: 048
     Dates: start: 20100219, end: 20100306

REACTIONS (1)
  - RENAL IMPAIRMENT [None]
